FAERS Safety Report 15836941 (Version 4)
Quarter: 2019Q3

REPORT INFORMATION
  Report Type: Spontaneous
  Country: CA (occurrence: CA)
  Receive Date: 20190117
  Receipt Date: 20190916
  Transmission Date: 20191004
  Serious: Yes (Hospitalization)
  Sender: FDA-Public Use
  Company Number: CA-MYLANLABS-2019M1003280

PATIENT
  Age: 52 Year
  Sex: Female

DRUGS (12)
  1. CLARITIN-D NOS [Concomitant]
     Active Substance: LORATADINE\PSEUDOEPHEDRINE SULFATE
     Indication: PRODUCT USED FOR UNKNOWN INDICATION
     Dosage: UNK
     Route: 048
  2. BUDESONIDE. [Concomitant]
     Active Substance: BUDESONIDE
  3. PRASTERONE [Suspect]
     Active Substance: PRASTERONE
     Indication: MENOPAUSE
     Dosage: UNK
     Route: 067
  4. GLICLAZIDE [Concomitant]
     Active Substance: GLICLAZIDE
     Indication: PRODUCT USED FOR UNKNOWN INDICATION
     Dosage: UNK
  5. DEHYDROEPIANDROSTERONE [Suspect]
     Active Substance: PRASTERONE
     Indication: PRODUCT USED FOR UNKNOWN INDICATION
     Route: 067
  6. ESTRADIOL. [Suspect]
     Active Substance: ESTRADIOL
     Indication: PRODUCT USED FOR UNKNOWN INDICATION
     Dosage: UNK
  7. BUDESONIDE. [Suspect]
     Active Substance: BUDESONIDE
     Indication: PRODUCT USED FOR UNKNOWN INDICATION
     Dosage: 1 DOSAGE FORM, QD
  8. CRINONE [Suspect]
     Active Substance: PROGESTERONE
     Indication: MENOPAUSE
     Dosage: UNK
  9. PROGESTERONE. [Suspect]
     Active Substance: PROGESTERONE
     Indication: MENOPAUSE
     Route: 067
  10. CLARITIN [Suspect]
     Active Substance: LORATADINE
     Indication: PRODUCT USED FOR UNKNOWN INDICATION
     Route: 048
  11. THYROID [Suspect]
     Active Substance: LEVOTHYROXINE\LIOTHYRONINE
     Indication: PRODUCT USED FOR UNKNOWN INDICATION
     Dosage: UNK
  12. CLARITIN [Concomitant]
     Active Substance: LORATADINE

REACTIONS (10)
  - Swelling face [Unknown]
  - Feeling hot [Unknown]
  - Product use in unapproved indication [Unknown]
  - Photosensitivity reaction [Unknown]
  - Tinnitus [Unknown]
  - Butterfly rash [Unknown]
  - Periorbital oedema [Unknown]
  - Cellulitis [Unknown]
  - Head discomfort [Unknown]
  - Rash [Unknown]
